FAERS Safety Report 12809118 (Version 1)
Quarter: 2016Q4

REPORT INFORMATION
  Report Type: Report from Study
  Country: JP (occurrence: JP)
  Receive Date: 20161004
  Receipt Date: 20161004
  Transmission Date: 20170207
  Serious: Yes (Hospitalization)
  Sender: FDA-Public Use
  Company Number: JP-B.I. PHARMACEUTICALS,INC./RIDGEFIELD-2014-BI-52951NB

PATIENT
  Age: 67 Year
  Sex: Female
  Weight: 47.1 kg

DRUGS (5)
  1. GILOTRIF [Suspect]
     Active Substance: AFATINIB
     Indication: LUNG ADENOCARCINOMA
     Route: 065
     Dates: end: 20140916
  2. GILOTRIF [Suspect]
     Active Substance: AFATINIB
     Route: 065
     Dates: end: 20150224
  3. GILOTRIF [Suspect]
     Active Substance: AFATINIB
     Route: 065
     Dates: end: 20140917
  4. GILOTRIF [Suspect]
     Active Substance: AFATINIB
     Route: 065
     Dates: end: 20141013
  5. GILOTRIF [Suspect]
     Active Substance: AFATINIB
     Route: 065
     Dates: end: 20150118

REACTIONS (13)
  - Malaise [Recovered/Resolved]
  - Malignant neoplasm progression [Not Recovered/Not Resolved]
  - Liver disorder [Recovered/Resolved]
  - Nausea [Recovered/Resolved]
  - Back pain [Recovered/Resolved]
  - Anaphylactic reaction [Recovered/Resolved]
  - Paronychia [Recovered/Resolved]
  - Diarrhoea [Recovered/Resolved]
  - Pruritus [Recovered/Resolved]
  - Malaise [Recovered/Resolved]
  - Nausea [Recovered/Resolved]
  - Decreased appetite [Recovered/Resolved]
  - Dysgeusia [Recovered/Resolved]

NARRATIVE: CASE EVENT DATE: 20140907
